FAERS Safety Report 18358886 (Version 1)
Quarter: 2020Q4

REPORT INFORMATION
  Report Type: Spontaneous
  Country: US (occurrence: US)
  Receive Date: 20201007
  Receipt Date: 20201007
  Transmission Date: 20210114
  Serious: Yes (Hospitalization)
  Sender: FDA-Public Use
  Company Number: None

PATIENT
  Age: 61 Year
  Sex: Female
  Weight: 111.13 kg

DRUGS (10)
  1. OSELTAMIVIR [Concomitant]
     Active Substance: OSELTAMIVIR
  2. ENTYVIO [Suspect]
     Active Substance: VEDOLIZUMAB
  3. FERROUS SULFATE. [Concomitant]
     Active Substance: FERROUS SULFATE
  4. ERGOCALCIFEROL. [Concomitant]
     Active Substance: ERGOCALCIFEROL
  5. AMLODIPINE [Suspect]
     Active Substance: AMLODIPINE BESYLATE
  6. GINGER ROOT [Concomitant]
     Active Substance: GINGER
  7. PREDNISONE. [Suspect]
     Active Substance: PREDNISONE
  8. PREDNISONE. [Suspect]
     Active Substance: PREDNISONE
  9. RIVAROXABAN [Concomitant]
     Active Substance: RIVAROXABAN
  10. LISINOPRIL. [Concomitant]
     Active Substance: LISINOPRIL

REACTIONS (13)
  - Vomiting [None]
  - Acute kidney injury [None]
  - Abdominal pain [None]
  - Gastroenteritis [None]
  - Colitis [None]
  - Blood urea increased [None]
  - Blood creatinine increased [None]
  - Nausea [None]
  - Systemic inflammatory response syndrome [None]
  - Dizziness [None]
  - Hypotension [None]
  - Blood lactic acid increased [None]
  - Adrenal insufficiency [None]

NARRATIVE: CASE EVENT DATE: 20200304
